FAERS Safety Report 19419344 (Version 1)
Quarter: 2021Q2

REPORT INFORMATION
  Report Type: Spontaneous
  Country: CH (occurrence: CH)
  Receive Date: 20210615
  Receipt Date: 20210615
  Transmission Date: 20210717
  Serious: Yes (Other)
  Sender: FDA-Public Use
  Company Number: CH-OTSUKA-2021_019707

PATIENT
  Age: 30 Year
  Sex: Female

DRUGS (1)
  1. REXULTI [Suspect]
     Active Substance: BREXPIPRAZOLE
     Indication: PSYCHOTIC DISORDER
     Dosage: 4 MG
     Route: 065

REACTIONS (2)
  - Product use in unapproved indication [Unknown]
  - Psychotic symptom [Not Recovered/Not Resolved]
